FAERS Safety Report 7474648-4 (Version None)
Quarter: 2011Q2

REPORT INFORMATION
  Report Type: 
  Country: None (occurrence: None)
  Receive Date: 20110512
  Receipt Date: 20110428
  Transmission Date: 20111010
  Serious: Yes (Hospitalization)
  Sender: FDA-Public Use
  Company Number: IT-JNJFOC-20110412410

PATIENT
  Sex: Female

DRUGS (8)
  1. HUMULIN R [Concomitant]
     Route: 065
  2. LEVOFLOXACIN [Suspect]
     Indication: HYPERPYREXIA
     Route: 048
  3. NORVASC [Concomitant]
     Route: 065
  4. ALLOPURINOL [Suspect]
     Indication: HYPERURICAEMIA
     Route: 048
  5. ASPIRIN [Concomitant]
     Route: 065
  6. TINSET [Concomitant]
     Route: 065
  7. CEFTRIAXONE [Suspect]
     Indication: BRONCHITIS
     Route: 030
  8. TORVAST [Concomitant]
     Route: 065

REACTIONS (2)
  - TOXIC EPIDERMAL NECROLYSIS [None]
  - COMA [None]
